FAERS Safety Report 22947433 (Version 2)
Quarter: 2023Q4

REPORT INFORMATION
  Report Type: Spontaneous
  Country: US (occurrence: US)
  Receive Date: 20230915
  Receipt Date: 20231106
  Transmission Date: 20240109
  Serious: No
  Sender: FDA-Public Use
  Company Number: US-BRISTOL-MYERS SQUIBB COMPANY-2023-130422

PATIENT
  Age: 67 Year
  Sex: Female

DRUGS (1)
  1. ORENCIA [Suspect]
     Active Substance: ABATACEPT
     Indication: Rheumatoid arthritis
     Dosage: STRENGTH: 87.5 MG /0.7
     Route: 058
     Dates: start: 20230611

REACTIONS (2)
  - Headache [Recovered/Resolved]
  - Nausea [Unknown]
